FAERS Safety Report 5118420-9 (Version None)
Quarter: 2006Q4

REPORT INFORMATION
  Report Type: 
  Country: None (occurrence: None)
  Receive Date: 20061002
  Receipt Date: 20060919
  Transmission Date: 20070319
  Serious: Yes (Other)
  Sender: FDA-Public Use
  Company Number: PHBS2006JP14477

PATIENT
  Sex: Female

DRUGS (1)
  1. TOFRANIL [Suspect]
     Indication: ENURESIS
     Dosage: 30 MG/DAY
     Route: 048
     Dates: end: 20060918

REACTIONS (7)
  - DEPRESSED MOOD [None]
  - DRY SKIN [None]
  - ERYTHEMA [None]
  - OEDEMA PERIPHERAL [None]
  - SKIN CHAPPED [None]
  - SOMNOLENCE [None]
  - SUICIDAL IDEATION [None]
